FAERS Safety Report 23403345 (Version 2)
Quarter: 2024Q1

REPORT INFORMATION
  Report Type: Spontaneous
  Country: US (occurrence: US)
  Receive Date: 20240116
  Receipt Date: 20240120
  Transmission Date: 20240410
  Serious: Yes (Hospitalization, Other)
  Sender: FDA-Public Use
  Company Number: US-CELLTRION INC.-2024US000679

PATIENT

DRUGS (2)
  1. INFLECTRA [Suspect]
     Active Substance: INFLIXIMAB-DYYB
     Indication: Colitis ulcerative
  2. PREDNISONE [Concomitant]
     Active Substance: PREDNISONE

REACTIONS (9)
  - Colitis ulcerative [Unknown]
  - Critical illness [Unknown]
  - Emotional disorder [Unknown]
  - Haemorrhage [Unknown]
  - Anxiety [Unknown]
  - Malaise [Unknown]
  - Arthralgia [Unknown]
  - Asthenia [Unknown]
  - Product dose omission issue [Unknown]
